FAERS Safety Report 20388446 (Version 1)
Quarter: 2022Q1

REPORT INFORMATION
  Report Type: Spontaneous
  Country: US (occurrence: US)
  Receive Date: 20220128
  Receipt Date: 20220128
  Transmission Date: 20220423
  Serious: No
  Sender: FDA-Public Use
  Company Number: US-ENDO PHARMACEUTICALS INC-2021-013645

PATIENT
  Age: 43 Year
  Sex: Female
  Weight: 63.492 kg

DRUGS (1)
  1. QWO [Suspect]
     Active Substance: COLLAGENASE CLOSTRIDIUM HISTOLYTICUM-AAES
     Indication: Cellulite
     Dosage: UNK UNKNOWN, UNKNOWN (TREATMENT ONE)
     Route: 065
     Dates: start: 20211208

REACTIONS (6)
  - Hypoaesthesia [Unknown]
  - Paraesthesia [Unknown]
  - Feeling hot [Unknown]
  - Dizziness [Unknown]
  - Head discomfort [Unknown]
  - Contusion [Unknown]

NARRATIVE: CASE EVENT DATE: 20211201
